FAERS Safety Report 10406977 (Version 1)
Quarter: 2014Q3

REPORT INFORMATION
  Report Type: Spontaneous
  Country: DE (occurrence: DE)
  Receive Date: 20140825
  Receipt Date: 20140825
  Transmission Date: 20150326
  Serious: Yes (Hospitalization, Other)
  Sender: FDA-Public Use
  Company Number: PHHY2014DE104684

PATIENT
  Age: 54 Year
  Sex: Male

DRUGS (12)
  1. QUETIAPINE [Interacting]
     Active Substance: QUETIAPINE
     Indication: SCHIZOPHRENIA, CATATONIC TYPE
     Dosage: 800 MG/DAY
     Dates: start: 201202
  2. LEVOTHYROXINE [Concomitant]
     Active Substance: LEVOTHYROXINE
     Dosage: 50 UG/DAY
  3. LORAZEPAM. [Interacting]
     Active Substance: LORAZEPAM
     Indication: SCHIZOPHRENIA, CATATONIC TYPE
     Dosage: 3.5 MG (UPTO 3.5 MG/DAY)
     Dates: start: 201202
  4. SIMVASTATIN. [Concomitant]
     Active Substance: SIMVASTATIN
     Dosage: 20 MG/DAY
  5. PANTOPRAZOLE [Concomitant]
     Active Substance: PANTOPRAZOLE SODIUM
     Dosage: 40 MG/DAY
  6. ACETYLSALICYLIC ACID [Concomitant]
     Active Substance: ASPIRIN
     Dosage: 100 MG/DAY
  7. RAMIPRIL. [Concomitant]
     Active Substance: RAMIPRIL
     Dosage: 10 MG/DAY
  8. TORASEMIDE [Concomitant]
     Active Substance: TORSEMIDE
     Dosage: 20 MG/DAY
  9. NORTRIPTYLINE [Suspect]
     Active Substance: NORTRIPTYLINE
     Indication: SCHIZOPHRENIA, CATATONIC TYPE
     Dosage: 75 MG/DAY
     Dates: start: 201202
  10. VALPROIC ACID. [Interacting]
     Active Substance: VALPROIC ACID
     Indication: SCHIZOPHRENIA, CATATONIC TYPE
     Dosage: 600 MG/DAY
     Dates: start: 201202
  11. TAMSULOSIN [Concomitant]
     Active Substance: TAMSULOSIN
     Dosage: 0.4 MG/DAY
  12. METOPROLOL [Concomitant]
     Active Substance: METOPROLOL
     Dosage: 100 MG/DAY

REACTIONS (30)
  - Altered state of consciousness [Recovering/Resolving]
  - Hyponatraemia [Unknown]
  - Dysarthria [Recovering/Resolving]
  - Coordination abnormal [Recovering/Resolving]
  - Blood potassium increased [Recovering/Resolving]
  - Sedation [Recovering/Resolving]
  - Leukocytosis [Recovering/Resolving]
  - Thought blocking [Recovering/Resolving]
  - Fall [Recovering/Resolving]
  - Traumatic fracture [Recovering/Resolving]
  - Somnolence [Recovering/Resolving]
  - Drug interaction [Unknown]
  - Psychomotor skills impaired [Recovering/Resolving]
  - Delusional perception [Recovering/Resolving]
  - Anxiety [Recovering/Resolving]
  - Increased appetite [Recovering/Resolving]
  - C-reactive protein increased [Recovering/Resolving]
  - Speech disorder [Recovering/Resolving]
  - Hypertension [Recovering/Resolving]
  - Tachycardia [Recovering/Resolving]
  - Cognitive disorder [Recovering/Resolving]
  - Visual impairment [Recovering/Resolving]
  - Crying [Recovering/Resolving]
  - Toxicity to various agents [Recovering/Resolving]
  - Tearfulness [Recovering/Resolving]
  - Hallucination, auditory [Recovering/Resolving]
  - Incoherent [Recovering/Resolving]
  - Depressed mood [Recovering/Resolving]
  - Thinking abnormal [Recovering/Resolving]
  - Affect lability [Recovering/Resolving]

NARRATIVE: CASE EVENT DATE: 201204
